FAERS Safety Report 19241850 (Version 1)
Quarter: 2021Q2

REPORT INFORMATION
  Report Type: Spontaneous
  Country: FR (occurrence: FR)
  Receive Date: 20210511
  Receipt Date: 20210511
  Transmission Date: 20210717
  Serious: Yes (Hospitalization)
  Sender: FDA-Public Use
  Company Number: FR-TEVA-2021-FR-1909981

PATIENT
  Age: 80 Year
  Sex: Male

DRUGS (2)
  1. PRISTINAMYCIN [Suspect]
     Active Substance: PRISTINAMYCIN
     Indication: ANTIBIOTIC THERAPY
     Route: 065
     Dates: start: 2015
  2. DOXYCYCLINE. [Suspect]
     Active Substance: DOXYCYCLINE
     Indication: ANTIBIOTIC THERAPY
     Route: 065

REACTIONS (2)
  - Drug ineffective [Unknown]
  - Mouth ulceration [Unknown]
